FAERS Safety Report 18704470 (Version 2)
Quarter: 2021Q2

REPORT INFORMATION
  Report Type: Report from Study
  Country: None (occurrence: US)
  Receive Date: 20210105
  Receipt Date: 20210401
  Transmission Date: 20210717
  Serious: Yes (Other)
  Sender: FDA-Public Use
  Company Number: US-ABBVIE-21K-163-3715177-00

PATIENT
  Sex: Female
  Weight: 57.66 kg

DRUGS (1)
  1. ORILISSA [Suspect]
     Active Substance: ELAGOLIX SODIUM
     Indication: PRODUCT USED FOR UNKNOWN INDICATION
     Route: 048
     Dates: start: 202001, end: 202003

REACTIONS (8)
  - Depression [Unknown]
  - Hysterectomy [Unknown]
  - Headache [Unknown]
  - Dizziness [Unknown]
  - Night sweats [Unknown]
  - Anxiety [Unknown]
  - Haemorrhage [Not Recovered/Not Resolved]
  - Nausea [Unknown]
